FAERS Safety Report 20748515 (Version 3)
Quarter: 2022Q4

REPORT INFORMATION
  Report Type: Spontaneous
  Country: US (occurrence: US)
  Receive Date: 20220426
  Receipt Date: 20221220
  Transmission Date: 20230113
  Serious: Yes (Other)
  Sender: FDA-Public Use
  Company Number: US-BRISTOL-MYERS SQUIBB COMPANY-2022-025727

PATIENT
  Age: 78 Year
  Sex: Male
  Weight: 112.49 kg

DRUGS (3)
  1. REVLIMID [Suspect]
     Active Substance: LENALIDOMIDE
     Indication: Plasma cell myeloma
     Dosage: DAILY FOR 21DAYS
     Route: 048
     Dates: start: 20220801
  2. REVLIMID [Suspect]
     Active Substance: LENALIDOMIDE
     Dosage: 3W, 1W OFF
     Route: 048
  3. REVLIMID [Suspect]
     Active Substance: LENALIDOMIDE
     Dosage: 21D ON 7D OFF
     Route: 048

REACTIONS (3)
  - Diarrhoea [Unknown]
  - Neutropenia [Unknown]
  - Fatigue [Unknown]
